FAERS Safety Report 4989950-5 (Version None)
Quarter: 2006Q2

REPORT INFORMATION
  Report Type: 
  Country: None (occurrence: None)
  Receive Date: 20060427
  Receipt Date: 20050912
  Transmission Date: 20061013
  Serious: Yes (Hospitalization)
  Sender: FDA-Public Use
  Company Number: 217226

PATIENT
  Age: 68 Year
  Sex: Male
  Weight: 68 kg

DRUGS (6)
  1. AVASTIN [Suspect]
     Indication: COLORECTAL CANCER
     Dosage: 350 MG, Q2W, INTRAVENOUS
     Route: 042
     Dates: start: 20050502
  2. IRINOTECAN HCL [Suspect]
     Indication: COLORECTAL CANCER
     Dosage: 230 MG, Q2W
     Dates: start: 20050502
  3. FLUOROURACIL [Suspect]
     Indication: COLORECTAL CANCER
     Dosage: 510 MG, Q2W
     Dates: start: 20050502
  4. LEUCOVORIN CALCIUM [Suspect]
     Indication: COLORECTAL CANCER
     Dosage: 340 MG, Q2W
     Dates: start: 20050502
  5. MICARDIS [Concomitant]
  6. HYDROCHLOROTHIAZIDE [Concomitant]

REACTIONS (1)
  - UROSEPSIS [None]
